FAERS Safety Report 20566193 (Version 1)
Quarter: 2022Q1

REPORT INFORMATION
  Report Type: Spontaneous
  Country: US (occurrence: US)
  Receive Date: 20220308
  Receipt Date: 20220308
  Transmission Date: 20220424
  Serious: No
  Sender: FDA-Public Use
  Company Number: US-PERRIGO-21US028438

PATIENT
  Age: 82 Year
  Sex: Male
  Weight: 72.562 kg

DRUGS (4)
  1. LORATADINE AND PSEUDOEPHEDRINE SULFATE [Suspect]
     Active Substance: LORATADINE\PSEUDOEPHEDRINE SULFATE
     Indication: Sinus congestion
     Dosage: 1 TABLET, Q12H
     Route: 048
     Dates: start: 20210917, end: 20210919
  2. VITAMINS NOS [Concomitant]
     Active Substance: VITAMINS
     Indication: Supplementation therapy
     Dosage: UNK
     Route: 065
  3. ASPIRIN [Concomitant]
     Active Substance: ASPIRIN
     Indication: Supplementation therapy
     Dosage: UNK
     Route: 065
  4. HOMEOPATHICS [Concomitant]
     Active Substance: HOMEOPATHICS
     Indication: Muscle spasms
     Dosage: UNK
     Route: 065
     Dates: start: 200209, end: 202109

REACTIONS (2)
  - Oral discomfort [Recovered/Resolved]
  - Choking [Recovered/Resolved]

NARRATIVE: CASE EVENT DATE: 20210917
